FAERS Safety Report 6964706-2 (Version None)
Quarter: 2010Q3

REPORT INFORMATION
  Report Type: 
  Country: None (occurrence: None)
  Receive Date: 20100903
  Receipt Date: 20100824
  Transmission Date: 20110219
  Serious: Yes (Death)
  Sender: FDA-Public Use
  Company Number: JP-PFIZER INC-2010095633

PATIENT
  Age: 45 Year
  Sex: Male
  Weight: 70.2 kg

DRUGS (17)
  1. SUTENT [Suspect]
     Indication: RENAL CELL CARCINOMA
     Dosage: UNK
     Route: 048
     Dates: start: 20091228, end: 20100708
  2. URSO 250 [Concomitant]
     Indication: HEPATIC ENZYME INCREASED
     Dosage: 1 G, 3X/DAY
     Route: 048
     Dates: start: 20080301
  3. RENIVACE [Concomitant]
     Indication: HYPERTENSION
     Dosage: 0.5 DF, 1X/DAY
     Route: 048
     Dates: start: 20080301
  4. ARTIST [Concomitant]
     Indication: HYPERTENSION
     Dosage: 1 DF, 2X/DAY
     Route: 048
     Dates: start: 20080301
  5. RINDERON [Concomitant]
     Indication: CANCER PAIN
     Dosage: 1 DF, 1X/DAY
     Route: 048
     Dates: start: 20080301
  6. MOBIC [Concomitant]
     Indication: CANCER PAIN
     Dosage: 1 DF, 1X/DAY
     Route: 048
     Dates: start: 20080301
  7. THYRADIN-S [Concomitant]
     Indication: HYPOTHYROIDISM
     Dosage: 1 DF, 1X/DAY
     Route: 048
     Dates: start: 20100101
  8. OXYCONTIN [Concomitant]
     Indication: CANCER PAIN
     Dosage: 2 DF, 2X/DAY
     Route: 048
     Dates: start: 20080301
  9. MARZULENE S [Concomitant]
     Indication: GASTRITIS
     Dosage: 0.5 G, 3X/DAY
     Route: 048
     Dates: start: 20080301
  10. OXINORM [Concomitant]
     Indication: CANCER PAIN
     Dosage: 1 DF, AS NEEDED
     Route: 048
     Dates: start: 20080301
  11. BENALON [Concomitant]
     Indication: METASTASES TO BONE
     Dosage: 1 DF, 1X/DAY
     Route: 048
     Dates: start: 20100101
  12. PURSENNID [Concomitant]
     Indication: CONSTIPATION
     Dosage: 2 DF, 1X/DAY
     Route: 048
     Dates: start: 20080301
  13. OMEPRAL [Concomitant]
     Indication: GASTRIC ULCER
     Dosage: 1 DF, 1X/DAY
     Dates: start: 20080301
  14. AMITRIPTYLINE HCL [Concomitant]
     Indication: DEPRESSION
     Dosage: 2 DF, 1X/DAY
     Route: 048
     Dates: start: 20080301
  15. AMITRIPTYLINE HCL [Concomitant]
     Indication: INSOMNIA
  16. MIYARI BACTERIA [Concomitant]
     Indication: DIARRHOEA
     Dosage: 4 DF, 2X/DAY
     Dates: start: 20080301
  17. MAGMITT [Concomitant]
     Indication: CONSTIPATION
     Route: 048

REACTIONS (3)
  - CARDIAC FAILURE [None]
  - CHOLECYSTITIS [None]
  - HAEMOBILIA [None]
